FAERS Safety Report 9380449 (Version 1)
Quarter: 2013Q2

REPORT INFORMATION
  Report Type: Spontaneous
  Country: GB (occurrence: None)
  Receive Date: 20130628
  Receipt Date: 20130628
  Transmission Date: 20140414
  Serious: Yes (Death, Other)
  Sender: FDA-Public Use
  Company Number: 2013P1010088

PATIENT
  Age: 1 Day
  Sex: Male

DRUGS (2)
  1. PROMETHAZINE [Suspect]
  2. METHADONE [Suspect]
     Route: 064

REACTIONS (4)
  - Neonatal respiratory depression [None]
  - Toxicity to various agents [None]
  - Hypoxia [None]
  - Maternal drugs affecting foetus [None]
